FAERS Safety Report 13189658 (Version 3)
Quarter: 2017Q1

REPORT INFORMATION
  Report Type: Spontaneous
  Country: GB (occurrence: GB)
  Receive Date: 20170206
  Receipt Date: 20170222
  Transmission Date: 20170428
  Serious: Yes (Other)
  Sender: FDA-Public Use
  Company Number: GB-PFIZER INC-2016488381

PATIENT
  Age: 40 Year
  Sex: Female
  Weight: 113 kg

DRUGS (8)
  1. EPANUTIN [Suspect]
     Active Substance: PHENYTOIN SODIUM
     Indication: GENERALISED TONIC-CLONIC SEIZURE
     Dosage: 200 MG, 2X/DAY
  2. PREMPAK C [Concomitant]
     Active Substance: ESTROGENS, CONJUGATED\NORGESTREL
     Dosage: 1.25 MG, UNK
     Route: 048
     Dates: start: 1994, end: 1999
  3. EPANUTIN [Suspect]
     Active Substance: PHENYTOIN SODIUM
     Dosage: 100 MG, 2X/DAY MORNING AND EVENING
     Dates: start: 1994
  4. LEVOTHYROXINE. [Concomitant]
     Active Substance: LEVOTHYROXINE
     Dosage: 50 MG, UNK
     Route: 048
     Dates: start: 2015
  5. ETHOSUXIMIDE. [Concomitant]
     Active Substance: ETHOSUXIMIDE
     Indication: EPILEPSY
     Dosage: 500 MG, 2X/DAY
     Route: 048
     Dates: start: 2004
  6. EPANUTIN [Suspect]
     Active Substance: PHENYTOIN SODIUM
     Dosage: UNK
  7. ATORVASTATIN [Concomitant]
     Active Substance: ATORVASTATIN
     Dosage: 40 MG, UNK
     Route: 048
     Dates: start: 2015
  8. PREMPAK C [Concomitant]
     Active Substance: ESTROGENS, CONJUGATED\NORGESTREL
     Dosage: 1.25 MG, UNK
     Route: 048
     Dates: start: 201602

REACTIONS (13)
  - Haematoma [Not Recovered/Not Resolved]
  - Epilepsy [Unknown]
  - Malaise [Recovered/Resolved]
  - Vomiting [Recovered/Resolved]
  - Nausea [Unknown]
  - Feeling abnormal [Unknown]
  - Drug level increased [Unknown]
  - Product quality issue [Unknown]
  - Eye injury [Not Recovered/Not Resolved]
  - Seizure [Unknown]
  - Hippocampal sclerosis [Unknown]
  - Tremor [Recovered/Resolved]
  - Headache [Recovered/Resolved]

NARRATIVE: CASE EVENT DATE: 201605
